FAERS Safety Report 6280190-9 (Version None)
Quarter: 2009Q3

REPORT INFORMATION
  Report Type: 
  Country: None (occurrence: None)
  Receive Date: 20090723
  Receipt Date: 20090714
  Transmission Date: 20100115
  Serious: Yes (Hospitalization)
  Sender: FDA-Public Use
  Company Number: US-AMGEN-QUU349352

PATIENT
  Sex: Female

DRUGS (1)
  1. ENBREL [Suspect]
     Indication: PSORIASIS
     Route: 058
     Dates: start: 20010101

REACTIONS (5)
  - EAR DISCOMFORT [None]
  - EAR PAIN [None]
  - ENDOMETRIOSIS [None]
  - HYSTERECTOMY [None]
  - OVARIAN CYST [None]
